FAERS Safety Report 5677248-1 (Version None)
Quarter: 2008Q1

REPORT INFORMATION
  Report Type: 
  Country: None (occurrence: None)
  Receive Date: 20080321
  Receipt Date: 20080321
  Transmission Date: 20080703
  Serious: Yes (Hospitalization)
  Sender: FDA-Public Use
  Company Number: None

PATIENT
  Age: 5 Month
  Sex: Male
  Weight: 5.8968 kg

DRUGS (1)
  1. TEETHING TABLETS / HYLAND'S [Suspect]
     Indication: TEETHING
     Dosage: 2TABLETS X 2 DAYS (ORAL)
     Route: 048

REACTIONS (1)
  - GASTRIC HAEMORRHAGE [None]
